FAERS Safety Report 25587164 (Version 1)
Quarter: 2025Q3

REPORT INFORMATION
  Report Type: Spontaneous
  Country: US (occurrence: US)
  Receive Date: 20250721
  Receipt Date: 20250721
  Transmission Date: 20251020
  Serious: Yes (Hospitalization)
  Sender: BRISTOL-MYERS SQUIBB COMPANY
  Company Number: US-BRISTOL-MYERS SQUIBB COMPANY-2025-101735

PATIENT
  Age: 58 Year
  Sex: Male

DRUGS (1)
  1. THALOMID [Suspect]
     Active Substance: THALIDOMIDE
     Indication: Hereditary haemorrhagic telangiectasia
     Dosage: 1 TIME A DAY BLISTER PAK
     Route: 048
     Dates: start: 202505

REACTIONS (4)
  - Abdominal pain upper [Not Recovered/Not Resolved]
  - Neck pain [Unknown]
  - Off label use [Unknown]
  - Arthralgia [Unknown]
